FAERS Safety Report 9224161 (Version 1)
Quarter: 2013Q2

REPORT INFORMATION
  Report Type: Spontaneous
  Country: US (occurrence: US)
  Receive Date: 20130411
  Receipt Date: 20130411
  Transmission Date: 20140414
  Serious: No
  Sender: FDA-Public Use
  Company Number: US-PFIZER INC-2013113308

PATIENT
  Sex: Male

DRUGS (2)
  1. CHANTIX [Suspect]
     Dosage: UNK
     Dates: start: 2013, end: 2013
  2. CHANTIX [Suspect]
     Dosage: UNK, 1X/DAY
     Dates: start: 2013, end: 201304

REACTIONS (3)
  - Drug administration error [Unknown]
  - Irritability [Unknown]
  - Fatigue [Unknown]
